FAERS Safety Report 8894802 (Version 4)
Quarter: 2013Q2

REPORT INFORMATION
  Report Type: Report from Study
  Country: CA (occurrence: CA)
  Receive Date: 20121108
  Receipt Date: 20130529
  Transmission Date: 20140414
  Serious: Yes (Hospitalization)
  Sender: FDA-Public Use
  Company Number: CA-JNJFOC-20121016816

PATIENT
  Age: 25 Year
  Sex: Female
  Weight: 78 kg

DRUGS (12)
  1. REMICADE [Suspect]
     Indication: CROHN^S DISEASE
     Route: 042
  2. REMICADE [Suspect]
     Indication: CROHN^S DISEASE
     Route: 042
     Dates: start: 20130412
  3. REMICADE [Suspect]
     Indication: CROHN^S DISEASE
     Route: 042
     Dates: start: 20121204
  4. REMICADE [Suspect]
     Indication: CROHN^S DISEASE
     Route: 042
     Dates: start: 20110107
  5. CYMBALTA [Concomitant]
     Route: 065
  6. IMURAN [Concomitant]
     Route: 065
  7. ALESSE [Concomitant]
     Route: 065
  8. BUSCOPAN [Concomitant]
     Route: 065
  9. MOTILIUM [Concomitant]
     Route: 065
  10. VITAMIN B12 [Concomitant]
     Route: 065
  11. TYLENOL [Concomitant]
     Route: 065
  12. TRAMADOL [Concomitant]
     Route: 065

REACTIONS (2)
  - Cholecystitis [Recovered/Resolved]
  - Ileostomy [Unknown]
